FAERS Safety Report 23952124 (Version 2)
Quarter: 2024Q3

REPORT INFORMATION
  Report Type: Spontaneous
  Country: CN (occurrence: CN)
  Receive Date: 20240607
  Receipt Date: 20240726
  Transmission Date: 20241016
  Serious: Yes (Hospitalization, Disabling, Other)
  Sender: PFIZER
  Company Number: CN-PFIZER INC-PV202400074184

PATIENT
  Age: 45 Year
  Sex: Male
  Weight: 75 kg

DRUGS (4)
  1. TYGACIL [Suspect]
     Active Substance: TIGECYCLINE
     Indication: Sepsis
     Dosage: 100 MG, 2X/DAY EVERY 12 HOURS
     Dates: start: 20240520, end: 20240531
  2. TYGACIL [Suspect]
     Active Substance: TIGECYCLINE
     Indication: Post procedural infection
     Dosage: 100 MG, 2X/DAY EVERY 12 HOURS
     Dates: start: 20240603, end: 20240604
  3. DEXTROSE [Concomitant]
     Active Substance: DEXTROSE\DEXTROSE MONOHYDRATE
     Indication: Vehicle solution use
     Dosage: 20 ML, 2X/DAY EVERY 12 HOURS
     Dates: start: 20240520, end: 20240531
  4. DEXTROSE [Concomitant]
     Active Substance: DEXTROSE\DEXTROSE MONOHYDRATE
     Dosage: 20 ML, 2X/DAY EVERY 12 HOURS
     Dates: start: 20240603, end: 20240604

REACTIONS (7)
  - Jaundice [Recovering/Resolving]
  - Liver injury [Recovering/Resolving]
  - Coagulopathy [Recovering/Resolving]
  - Alanine aminotransferase increased [Recovering/Resolving]
  - Aspartate aminotransferase increased [Recovering/Resolving]
  - Gamma-glutamyltransferase increased [Recovering/Resolving]
  - Off label use [Unknown]

NARRATIVE: CASE EVENT DATE: 20240520
